FAERS Safety Report 13908713 (Version 1)
Quarter: 2017Q3

REPORT INFORMATION
  Report Type: Report from Study
  Country: US (occurrence: US)
  Receive Date: 20170827
  Receipt Date: 20170827
  Transmission Date: 20171127
  Serious: Yes (Hospitalization, Other)
  Sender: FDA-Public Use
  Company Number: US-KAMADA LIMITED-2017US003074

PATIENT

DRUGS (1)
  1. GLASSIA [Suspect]
     Active Substance: .ALPHA.1-PROTEINASE INHIBITOR HUMAN
     Indication: ALPHA-1 ANTI-TRYPSIN DEFICIENCY
     Dosage: UNITS= MG/ML 6 BOTTLES, 1/WEEK
     Route: 042
     Dates: start: 20160610

REACTIONS (10)
  - Arthralgia [Unknown]
  - Headache [Unknown]
  - Pain in extremity [Unknown]
  - Musculoskeletal chest pain [Not Recovered/Not Resolved]
  - General physical health deterioration [Unknown]
  - Dysphagia [Not Recovered/Not Resolved]
  - Loss of personal independence in daily activities [Unknown]
  - Suicidal ideation [Unknown]
  - Dyspnoea [Unknown]
  - Muscle spasms [Unknown]

NARRATIVE: CASE EVENT DATE: 201606
